FAERS Safety Report 8967322 (Version 1)
Quarter: 2012Q4

REPORT INFORMATION
  Report Type: 
  Country: GT (occurrence: GT)
  Receive Date: 20121217
  Receipt Date: 20121217
  Transmission Date: 20130627
  Serious: Yes (Other)
  Sender: FDA-Public Use
  Company Number: GT-ELI_LILLY_AND_COMPANY-GT201212002288

PATIENT
  Age: 45 Year
  Sex: Male

DRUGS (2)
  1. HUMALOG 25% LISPRO, 75% NPL [Suspect]
     Indication: TYPE 2 DIABETES MELLITUS
     Dosage: 30 u, each morning
  2. HUMALOG 25% LISPRO, 75% NPL [Suspect]
     Dosage: 10 u, each evening

REACTIONS (1)
  - Blood glucose increased [Recovering/Resolving]
